FAERS Safety Report 23718890 (Version 1)
Quarter: 2024Q2

REPORT INFORMATION
  Report Type: Spontaneous
  Country: US (occurrence: US)
  Receive Date: 20240408
  Receipt Date: 20240408
  Transmission Date: 20240716
  Serious: No
  Sender: FDA-Public Use
  Company Number: US-BAXTER-2024BAX016034

PATIENT
  Age: 65 Year
  Sex: Male

DRUGS (8)
  1. SODIUM CHLORIDE [Suspect]
     Active Substance: SODIUM CHLORIDE
     Dosage: AT AN UNSPECIFIED DOSE AND FRQUENCY
     Route: 065
  2. CABOMETYX [Suspect]
     Active Substance: CABOZANTINIB S-MALATE
     Indication: Renal cancer
     Dosage: 40 MG (MILLIGRAM) ONCE A DAY
     Route: 048
  3. KEYTRUDA [Suspect]
     Active Substance: PEMBROLIZUMAB
     Indication: Renal cancer
     Dosage: AT UNSPECIFIED DOSE EVERY 3 WEEKS
     Route: 065
  4. PEPCID AC [Suspect]
     Active Substance: FAMOTIDINE
     Indication: Gastrooesophageal reflux disease
     Dosage: AT AN UNSPECIFIED DOSE AND FREQUENCY
     Route: 065
  5. PEPCID AC [Suspect]
     Active Substance: FAMOTIDINE
     Indication: Dyspepsia
     Dosage: AT AN UNSPECIFIED DOSE ONCE OR TWICE A DAY
     Route: 065
  6. PEPCID AC [Suspect]
     Active Substance: FAMOTIDINE
     Dosage: AT AN UNSPECIFIED DOSE TWICE A DAY
     Route: 065
  7. BENAZEPRIL AND HYDROCHLOROTHIAZIDE [Suspect]
     Active Substance: BENAZEPRIL HYDROCHLORIDE\HYDROCHLOROTHIAZIDE
     Indication: Joint swelling
     Dosage: AT AN INCREASED DOSE
     Route: 065
  8. BENAZEPRIL AND HYDROCHLOROTHIAZIDE [Suspect]
     Active Substance: BENAZEPRIL HYDROCHLORIDE\HYDROCHLOROTHIAZIDE
     Indication: Blood pressure increased
     Dosage: (BENAZAPRIL/HCTZ) 20/25 MG ONCE DAILY
     Route: 065

REACTIONS (17)
  - Oedema [Unknown]
  - Joint swelling [Recovering/Resolving]
  - Peripheral swelling [Recovering/Resolving]
  - Dyspepsia [Recovering/Resolving]
  - Gastrooesophageal reflux disease [Recovering/Resolving]
  - Blood pressure increased [Recovering/Resolving]
  - Diarrhoea [Unknown]
  - Cough [Recovering/Resolving]
  - Abdominal discomfort [Recovering/Resolving]
  - Vomiting [Recovering/Resolving]
  - Erythema [Recovering/Resolving]
  - Fatigue [Recovering/Resolving]
  - Stomatitis [Recovering/Resolving]
  - Tenderness [Unknown]
  - Seasonal allergy [Recovering/Resolving]
  - Hepatic enzyme increased [Unknown]
  - Taste disorder [Unknown]

NARRATIVE: CASE EVENT DATE: 20240129
